FAERS Safety Report 7430398-1 (Version None)
Quarter: 2011Q2

REPORT INFORMATION
  Report Type: 
  Country: None (occurrence: None)
  Receive Date: 20110421
  Receipt Date: 20101101
  Transmission Date: 20111010
  Serious: No
  Sender: FDA-Public Use
  Company Number: US-ASTRAZENECA-2010SE38633

PATIENT
  Age: 75 Year
  Sex: Female
  Weight: 72.6 kg

DRUGS (5)
  1. METOPROLOL TARTRATE [Suspect]
     Route: 048
  2. METOPROLOL TARTRATE [Suspect]
     Indication: ATRIAL FIBRILLATION
     Route: 048
  3. TRAZODONE HCL [Concomitant]
     Indication: INSOMNIA
  4. TOPROL-XL [Suspect]
     Indication: ATRIAL FIBRILLATION
     Route: 048
     Dates: start: 20100801, end: 20100816
  5. ZYRTEC [Concomitant]
     Indication: HYPERSENSITIVITY

REACTIONS (5)
  - HEADACHE [None]
  - HYPERHIDROSIS [None]
  - FEELING ABNORMAL [None]
  - REFUSAL OF TREATMENT BY PATIENT [None]
  - CHILLS [None]
